FAERS Safety Report 9365449 (Version 2)
Quarter: 2013Q3

REPORT INFORMATION
  Report Type: Report from Study
  Country: CA (occurrence: CA)
  Receive Date: 20130625
  Receipt Date: 20130913
  Transmission Date: 20140515
  Serious: Yes (Other)
  Sender: FDA-Public Use
  Company Number: CA-ROCHE-1237226

PATIENT
  Age: 58 Year
  Sex: Female

DRUGS (1)
  1. TRASTUZUMAB EMTANSINE [Suspect]
     Indication: PRODUCT USED FOR UNKNOWN INDICATION
     Dosage: LAST DOSE OF TRASTUZUMAB EMTANSINE WAS ON 04/JAN/2013.
     Route: 065

REACTIONS (2)
  - Drug ineffective [Unknown]
  - Disease progression [Unknown]
